FAERS Safety Report 8096845 (Version 3)
Quarter: 2012Q4

REPORT INFORMATION
  Report Type: 
  Country: BE (occurrence: BE)
  Receive Date: 20110818
  Receipt Date: 20121107
  Transmission Date: 20130627
  Serious: Yes (Death, Hospitalization)
  Sender: FDA-Public Use
  Company Number: PHHO2011BE13944

PATIENT
  Age: 73 Year
  Sex: Male
  Weight: 73 kg

DRUGS (5)
  1. AFINITOR [Suspect]
     Indication: NEUROENDOCRINE TUMOUR
     Dosage: 10 mg, UNK
     Dates: start: 20110716, end: 20110817
  2. AFINITOR [Suspect]
     Dosage: 10 mg, UNK
     Dates: end: 20110831
  3. MEDROL [Concomitant]
     Indication: PROPHYLAXIS
     Dosage: 8 mg, QD
     Dates: start: 20110601, end: 20110912
  4. BURINEX [Concomitant]
     Indication: OEDEMA
     Dosage: 2.5 mg, QD
     Dates: start: 20110601, end: 20110912
  5. PANTOPRAZOLE [Concomitant]
     Indication: PROPHYLAXIS
     Dosage: 40 mg, QD
     Dates: start: 20110601, end: 20110912

REACTIONS (3)
  - General physical health deterioration [Unknown]
  - Neoplasm progression [Fatal]
  - Malignant neoplasm progression [Fatal]
